FAERS Safety Report 6115927-2 (Version None)
Quarter: 2009Q1

REPORT INFORMATION
  Report Type: 
  Country: None (occurrence: None)
  Receive Date: 20090311
  Receipt Date: 20090224
  Transmission Date: 20090719
  Serious: Yes (Death)
  Sender: FDA-Public Use
  Company Number: DSJ-2009-01794

PATIENT
  Age: 77 Year
  Sex: Female
  Weight: 42 kg

DRUGS (3)
  1. OLMETEC            (OLMESARTAN MEDOXOMIL) [Suspect]
     Indication: ESSENTIAL HYPERTENSION
     Dosage: 20 MG (20 MG, 1 IN 1 D), PER ORAL
     Route: 048
     Dates: start: 20060720, end: 20080708
  2. CONIEL (BENIDIPINE HYDROCHLORIDE) [Concomitant]
  3. TRICHLORMETHIAZIDE [Concomitant]

REACTIONS (4)
  - CARDIO-RESPIRATORY ARREST [None]
  - MYDRIASIS [None]
  - PUPILLARY REFLEX IMPAIRED [None]
  - SUDDEN DEATH [None]
